FAERS Safety Report 16407752 (Version 3)
Quarter: 2019Q3

REPORT INFORMATION
  Report Type: Spontaneous
  Country: US (occurrence: US)
  Receive Date: 20190609
  Receipt Date: 20190729
  Transmission Date: 20191004
  Serious: Yes (Hospitalization)
  Sender: FDA-Public Use
  Company Number: US-CELGENEUS-USA-20190511433

PATIENT
  Age: 54 Year
  Sex: Female

DRUGS (12)
  1. ALOXI /DEXAMETHASONE [Concomitant]
     Indication: PREMEDICATION
     Dosage: 0.25 MCG/10 G
     Route: 065
     Dates: start: 20190214
  2. OLMESARTAN [Concomitant]
     Active Substance: OLMESARTAN
     Indication: PREMEDICATION
     Route: 048
  3. VENOFER [Concomitant]
     Active Substance: IRON SUCROSE
     Dosage: 200 MILLIGRAM
     Route: 041
     Dates: start: 20190221, end: 20190221
  4. ZOLOFT [Concomitant]
     Active Substance: SERTRALINE HYDROCHLORIDE
     Indication: PRODUCT USED FOR UNKNOWN INDICATION
     Route: 048
  5. ATIVAN [Concomitant]
     Active Substance: LORAZEPAM
     Indication: PREMEDICATION
     Route: 048
  6. XARELTO [Concomitant]
     Active Substance: RIVAROXABAN
     Indication: PREMEDICATION
     Route: 048
  7. CARBOPLATIN. [Concomitant]
     Active Substance: CARBOPLATIN
     Indication: NON-SMALL CELL LUNG CANCER
     Dosage: 300 MILLIGRAM
     Route: 041
     Dates: start: 20190214, end: 20190314
  8. ALOXI /DEXAMETHASONE [Concomitant]
     Dosage: 0.25 MCG/10 G
     Route: 065
     Dates: start: 20190228, end: 20190314
  9. COLACE [Concomitant]
     Active Substance: DOCUSATE SODIUM
     Indication: PREMEDICATION
     Route: 048
  10. ABRAXANE [Suspect]
     Active Substance: PACLITAXEL
     Indication: NON-SMALL CELL LUNG CANCER
     Dosage: 80 MILLIGRAM
     Route: 041
     Dates: start: 20190214, end: 20190314
  11. PREDNISONE. [Concomitant]
     Active Substance: PREDNISONE
     Indication: PREMEDICATION
     Route: 048
  12. VENOFER [Concomitant]
     Active Substance: IRON SUCROSE
     Indication: ANAEMIA
     Dosage: 200 MILLIGRAM
     Route: 041
     Dates: start: 20190214

REACTIONS (3)
  - Chest discomfort [Recovered/Resolved]
  - Urticaria [Recovered/Resolved]
  - Pruritus [Recovered/Resolved]

NARRATIVE: CASE EVENT DATE: 20190314
